FAERS Safety Report 24088313 (Version 1)
Quarter: 2024Q3

REPORT INFORMATION
  Report Type: Spontaneous
  Country: GB (occurrence: GB)
  Receive Date: 20240715
  Receipt Date: 20240715
  Transmission Date: 20241016
  Serious: Yes (Other)
  Sender: AUROBINDO
  Company Number: GB-MYLANLABS-2024M1062782

PATIENT
  Age: 12 Year
  Sex: Male

DRUGS (1)
  1. AZITHROMYCIN ANHYDROUS [Suspect]
     Active Substance: AZITHROMYCIN ANHYDROUS
     Indication: Product used for unknown indication
     Dosage: 250 MILLIGRAM, ONCE A DAY (250 MILLIGRAM, QD (ONCE DAILY)
     Route: 065
     Dates: start: 202108, end: 20221024

REACTIONS (1)
  - Deafness neurosensory [Recovered/Resolved]
